FAERS Safety Report 8847907 (Version 1)
Quarter: 2012Q4

REPORT INFORMATION
  Report Type: 
  Country: JP (occurrence: JP)
  Receive Date: 20121018
  Receipt Date: 20121018
  Transmission Date: 20130627
  Serious: Yes (Other)
  Sender: FDA-Public Use
  Company Number: JP-PFIZER INC-2012258256

PATIENT
  Age: 88 Year
  Sex: Female

DRUGS (3)
  1. LYRICA [Suspect]
     Indication: SCIATICA
     Dosage: 25 mg, 2x/day
     Route: 048
     Dates: start: 20120924
  2. TRIAZOLAM [Concomitant]
     Dosage: 0.25 mg/day
     Route: 048
     Dates: start: 20100310
  3. DEPAS [Concomitant]
     Dosage: 0.5 mg, 3x/day
     Route: 048
     Dates: start: 20100310

REACTIONS (4)
  - Fall [Unknown]
  - Fracture [Unknown]
  - Confusional state [Unknown]
  - Hallucination [Unknown]
